FAERS Safety Report 15082928 (Version 1)
Quarter: 2018Q2

REPORT INFORMATION
  Report Type: Spontaneous
  Country: US (occurrence: US)
  Receive Date: 20180628
  Receipt Date: 20180628
  Transmission Date: 20180711
  Serious: No
  Sender: FDA-Public Use
  Company Number: US-GLENMARK PHARMACEUTICALS-2018GMK032727

PATIENT

DRUGS (2)
  1. MUPIROCIN. [Suspect]
     Active Substance: MUPIROCIN
     Indication: NODULE
     Dosage: UNK
     Route: 061
     Dates: start: 20160809
  2. MUPIROCIN. [Suspect]
     Active Substance: MUPIROCIN
     Indication: PRURITUS

REACTIONS (2)
  - No adverse event [Unknown]
  - Product use in unapproved indication [Unknown]
